FAERS Safety Report 6303690-1 (Version None)
Quarter: 2009Q3

REPORT INFORMATION
  Report Type: 
  Country: None (occurrence: None)
  Receive Date: 20090810
  Receipt Date: 20090731
  Transmission Date: 20100115
  Serious: Yes (Hospitalization, Other)
  Sender: FDA-Public Use
  Company Number: AT-ABBOTT-09P-009-0581881-00

PATIENT
  Sex: Female
  Weight: 49 kg

DRUGS (16)
  1. HUMIRA [Suspect]
     Indication: CROHN'S DISEASE
     Route: 058
     Dates: start: 20080219, end: 20080219
  2. HUMIRA [Suspect]
     Route: 058
  3. HUMIRA [Suspect]
     Route: 058
  4. URBASON [Concomitant]
     Indication: CROHN'S DISEASE
     Dates: start: 19980301, end: 20080825
  5. FOLSAN [Concomitant]
     Indication: VITAMIN SUPPLEMENTATION
     Dates: start: 20090729
  6. FOLSAN [Concomitant]
     Dates: start: 20090624, end: 20090728
  7. EBETREXAT [Concomitant]
     Indication: CROHN'S DISEASE
     Dates: start: 20090728
  8. EBETREXAT [Concomitant]
     Dates: start: 20090624, end: 20090727
  9. SERETIDE [Concomitant]
     Indication: ASTHMA
     Route: 055
     Dates: start: 20090624
  10. SPIRIVA [Concomitant]
     Indication: ASTHMA
     Route: 055
     Dates: start: 20090628
  11. PREDNISONE TAB [Concomitant]
     Indication: CROHN'S DISEASE
     Dates: start: 20090728
  12. PREDNISONE TAB [Concomitant]
     Dates: start: 20090708, end: 20090727
  13. PREDNISONE TAB [Concomitant]
     Dates: start: 20090624, end: 20090707
  14. LISIHEXAL [Concomitant]
     Indication: PAIN
     Dates: start: 20090624
  15. LISIHEXAL [Concomitant]
     Indication: HYPERTONIA
  16. NEXIUM [Concomitant]
     Indication: PROPHYLAXIS AGAINST GASTROINTESTINAL ULCER
     Dates: start: 20090624

REACTIONS (1)
  - ARTHRALGIA [None]
